FAERS Safety Report 7124661-1 (Version None)
Quarter: 2010Q4

REPORT INFORMATION
  Report Type: 
  Country: None (occurrence: None)
  Receive Date: 20101129
  Receipt Date: 20101115
  Transmission Date: 20110411
  Serious: Yes (Other)
  Sender: FDA-Public Use
  Company Number: US-RANBAXY-2010US-39480

PATIENT

DRUGS (4)
  1. METFORMIN HYDROCHLORIDE [Suspect]
     Indication: TYPE 2 DIABETES MELLITUS
     Dosage: 500 MG, BID
     Route: 048
  2. NIACIN [Concomitant]
     Indication: PRODUCT USED FOR UNKNOWN INDICATION
     Route: 065
  3. SIMVASTATIN [Concomitant]
     Indication: PRODUCT USED FOR UNKNOWN INDICATION
     Route: 065
  4. SIMVASTATIN [Concomitant]
     Dosage: REINTRODUCED 1 YEAR LATER
     Route: 065

REACTIONS (1)
  - HEPATOTOXICITY [None]
